FAERS Safety Report 8517441-3 (Version None)
Quarter: 2012Q3

REPORT INFORMATION
  Report Type: 
  Country: None (occurrence: None)
  Receive Date: 20120718
  Receipt Date: 20120423
  Transmission Date: 20120928
  Serious: Yes (Hospitalization)
  Sender: FDA-Public Use
  Company Number: LB-SANOFI-AVENTIS-2012SA050232

PATIENT
  Age: 71 Year
  Sex: Male
  Weight: 63 kg

DRUGS (4)
  1. CONCOR [Concomitant]
     Indication: HYPERTENSION
     Dosage: START DATE: MORE THAN 10 YEARS AGO; DOSE: 5MG (HALF TABLET A DAY)
     Route: 048
  2. CHLOROQUINE PHOSPHATE [Concomitant]
     Dosage: START DATE: } 10 YEARS AGO; DOSE: 1 TABLET/DAY
     Route: 048
  3. ISOPTIN [Concomitant]
     Indication: HYPERTENSION
     Dosage: START DATE: } 10 YEARS AGO; DOSE: 1 TAB/DAY
     Route: 048
  4. JEVTANA KIT [Suspect]
     Indication: PROSTATE CANCER METASTATIC
     Route: 042
     Dates: start: 20120301, end: 20120323

REACTIONS (3)
  - HYPOKALAEMIA [None]
  - SOMNOLENCE [None]
  - GENERAL SYMPTOM [None]
